FAERS Safety Report 9157111 (Version 2)
Quarter: 2013Q1

REPORT INFORMATION
  Report Type: Spontaneous
  Country: US (occurrence: US)
  Receive Date: 20130312
  Receipt Date: 20130314
  Transmission Date: 20140127
  Serious: Yes (Other)
  Sender: FDA-Public Use
  Company Number: US-PFIZER INC-2013080969

PATIENT
  Age: 71 Year
  Sex: Male
  Weight: 8 kg

DRUGS (2)
  1. NEURONTIN [Suspect]
     Indication: MIGRAINE
     Dosage: 300 MG, 5X/DAILY
     Dates: start: 2012
  2. PROPRANOLOL ER [Concomitant]
     Indication: MIGRAINE
     Dosage: 15 MG DAILY

REACTIONS (4)
  - Glycosylated haemoglobin increased [Unknown]
  - Blood glucose increased [Unknown]
  - Weight decreased [Unknown]
  - Off label use [Unknown]
